FAERS Safety Report 5906614-1 (Version None)
Quarter: 2008Q4

REPORT INFORMATION
  Report Type: 
  Country: None (occurrence: None)
  Receive Date: 20081002
  Receipt Date: 20080923
  Transmission Date: 20090506
  Serious: Yes (Other)
  Sender: FDA-Public Use
  Company Number: US-ELI_LILLY_AND_COMPANY-US200809005200

PATIENT
  Sex: Female
  Weight: 48.526 kg

DRUGS (2)
  1. BYETTA [Suspect]
     Indication: TYPE 2 DIABETES MELLITUS
     Dosage: UNK, UNKNOWN
     Route: 058
     Dates: start: 20070501, end: 20070901
  2. METFORMIN HCL [Concomitant]
     Indication: TYPE 2 DIABETES MELLITUS
     Dates: start: 20070415

REACTIONS (12)
  - ABDOMINAL PAIN [None]
  - CARCINOID TUMOUR PULMONARY [None]
  - CARPAL TUNNEL SYNDROME [None]
  - HYPOAESTHESIA [None]
  - MALIGNANT MELANOMA [None]
  - PAIN [None]
  - PAIN IN EXTREMITY [None]
  - PANCREATITIS [None]
  - PANCREATOLITHIASIS [None]
  - RIB FRACTURE [None]
  - STENT PLACEMENT [None]
  - WEIGHT DECREASED [None]
